FAERS Safety Report 9018322 (Version 1)
Quarter: 2013Q1

REPORT INFORMATION
  Report Type: Spontaneous
  Country: US (occurrence: None)
  Receive Date: 20130111
  Receipt Date: 20130111
  Transmission Date: 20140127
  Serious: Yes (Hospitalization)
  Sender: FDA-Public Use
  Company Number: None

PATIENT
  Age: 96 Year
  Sex: Male
  Weight: 72.7 kg

DRUGS (5)
  1. COUMADIN [Suspect]
     Indication: ATRIAL FIBRILLATION
     Dosage: 2.5MG  M-F  PO?CHRONIC
     Route: 048
  2. COUMADIN [Suspect]
     Indication: ATRIAL FIBRILLATION
     Dosage: 5MG  SS  PO?CHRONIC
     Route: 048
  3. PRESERVISION LUTEIN [Concomitant]
  4. IRON SULFATE [Concomitant]
  5. CARDIZEM CD [Concomitant]

REACTIONS (8)
  - Fall [None]
  - Laceration [None]
  - Muscle haemorrhage [None]
  - International normalised ratio increased [None]
  - Staphylococcal sepsis [None]
  - Haemorrhagic stroke [None]
  - Hypernatraemia [None]
  - Urinary tract infection [None]
